FAERS Safety Report 9846802 (Version 1)
Quarter: 2014Q1

REPORT INFORMATION
  Report Type: Spontaneous
  Country: HR (occurrence: HR)
  Receive Date: 20140127
  Receipt Date: 20140127
  Transmission Date: 20141002
  Serious: Yes (Other)
  Sender: FDA-Public Use
  Company Number: HR-TEVA-456430ISR

PATIENT
  Age: 75 Year
  Sex: Female
  Weight: 65 kg

DRUGS (11)
  1. CARBOPLATIN PLIVA [Suspect]
     Indication: OVARIAN CANCER
     Route: 041
     Dates: start: 20130826, end: 20131115
  2. PACLITAXEL PLIVA [Suspect]
     Indication: OVARIAN CANCER
     Route: 041
     Dates: start: 20130826, end: 20131115
  3. SETRONON INJEKCIJE [Concomitant]
     Indication: PREMEDICATION
     Dosage: AMPOULES
     Route: 042
     Dates: start: 20130826, end: 20131115
  4. SYNOPEN [Concomitant]
     Indication: PREMEDICATION
     Dosage: AMPOULES
     Route: 042
     Dates: start: 20130826, end: 20131115
  5. SYNOPEN [Concomitant]
     Indication: PREMEDICATION
     Route: 042
     Dates: start: 20130826, end: 20131115
  6. PEPTORAN [Concomitant]
     Indication: PREMEDICATION
     Dosage: AMPOULES
     Route: 042
     Dates: start: 20130826, end: 20131115
  7. DEXAMETHASONE [Concomitant]
     Indication: PREMEDICATION
     Route: 042
     Dates: start: 20130826, end: 20131115
  8. DEXAMETHASONE [Concomitant]
     Indication: PREMEDICATION
     Route: 042
     Dates: start: 20130826, end: 20131115
  9. KCL [Concomitant]
     Indication: PREMEDICATION
     Route: 042
     Dates: start: 20130826, end: 20131115
  10. SODIUM BICARBONATE [Concomitant]
     Indication: PREMEDICATION
     Route: 042
     Dates: start: 20130826, end: 20131115
  11. SALINE [Concomitant]
     Route: 042
     Dates: start: 20130826, end: 20131115

REACTIONS (8)
  - Hypersensitivity [Recovered/Resolved]
  - Erythema [Recovered/Resolved]
  - Eye swelling [Recovered/Resolved]
  - Pruritus [Recovered/Resolved]
  - Generalised erythema [Recovered/Resolved]
  - Nausea [Recovered/Resolved]
  - Asthenia [Recovered/Resolved]
  - Vomiting [Recovered/Resolved]
